FAERS Safety Report 7531385-5 (Version None)
Quarter: 2011Q2

REPORT INFORMATION
  Report Type: 
  Country: None (occurrence: None)
  Receive Date: 20110608
  Receipt Date: 20110525
  Transmission Date: 20111010
  Serious: Yes (Other)
  Sender: FDA-Public Use
  Company Number: PHHY2011TW43577

PATIENT
  Age: 38 Year
  Sex: Female

DRUGS (10)
  1. ZOMETA [Suspect]
     Dosage: 4 MG IN 100 ML SALINE
     Route: 041
     Dates: start: 20110215
  2. ZOMETA [Suspect]
     Dosage: 4 MG IN 100ML SALINE
     Route: 041
     Dates: start: 20110510
  3. ZOMETA [Suspect]
     Dosage: 4 MG IN 100 ML SALINE
     Route: 041
     Dates: start: 20110315
  4. ZOMETA [Suspect]
     Dosage: 4 MG IN 100 ML SALINE
     Route: 041
     Dates: start: 20110412
  5. DEXAMETHASONE [Concomitant]
     Indication: MULTIPLE MYELOMA
     Dosage: 40 MG PER DAY
     Route: 041
     Dates: start: 20100603, end: 20101026
  6. ZOMETA [Suspect]
     Indication: MULTIPLE MYELOMA
     Dosage: 4 MG IN 100ML SALINE
     Route: 041
     Dates: start: 20101001
  7. ZOMETA [Suspect]
     Dosage: 4 MG IN 100 ML SALINE
     Route: 041
     Dates: start: 20101029
  8. DEXAMETHASONE [Concomitant]
     Dosage: 5 MG, Q6H
     Route: 041
     Dates: start: 20110430, end: 20110515
  9. DEXAMETHASONE [Concomitant]
     Dosage: 5 MG, BID
     Route: 048
     Dates: start: 20110128, end: 20110209
  10. DEXAMETHASONE [Concomitant]
     Dosage: 20 MG IN DAY
     Route: 048
     Dates: start: 20110330, end: 20110428

REACTIONS (7)
  - SOFT TISSUE INFECTION [None]
  - GINGIVAL PAIN [None]
  - EXPOSED BONE IN JAW [None]
  - GINGIVAL ERYTHEMA [None]
  - OSTEONECROSIS OF JAW [None]
  - GINGIVAL SWELLING [None]
  - GINGIVAL INFECTION [None]
